FAERS Safety Report 6101334-5 (Version None)
Quarter: 2009Q1

REPORT INFORMATION
  Report Type: 
  Country: None (occurrence: None)
  Receive Date: 20090304
  Receipt Date: 20090302
  Transmission Date: 20090719
  Serious: Yes (Hospitalization)
  Sender: FDA-Public Use
  Company Number: JP-ASTRAZENECA-2008AP08196

PATIENT
  Age: 76 Year
  Sex: Male
  Weight: 65 kg

DRUGS (4)
  1. CASODEX [Suspect]
     Indication: PROSTATE CANCER
     Route: 048
     Dates: start: 20040116, end: 20040326
  2. CASODEX [Suspect]
     Route: 048
     Dates: start: 20081010, end: 20081012
  3. OLMETEC [Concomitant]
     Route: 048
  4. ZOLADEX [Concomitant]
     Indication: PROSTATE CANCER
     Route: 042
     Dates: start: 20040130

REACTIONS (2)
  - HEPATIC FUNCTION ABNORMAL [None]
  - HYPERGLYCAEMIC HYPEROSMOLAR NONKETOTIC SYNDROME [None]
